FAERS Safety Report 26181217 (Version 1)
Quarter: 2025Q4

REPORT INFORMATION
  Report Type: Spontaneous
  Country: CN (occurrence: CN)
  Receive Date: 20251221
  Receipt Date: 20251221
  Transmission Date: 20260119
  Serious: Yes (Hospitalization)
  Sender: NOVARTIS
  Company Number: CN-002147023-NVSC2025CN193684

PATIENT
  Age: 56 Year
  Sex: Male

DRUGS (23)
  1. AMLODIPINE\VALSARTAN [Interacting]
     Active Substance: AMLODIPINE\VALSARTAN
     Indication: Hyperaldosteronism
     Dosage: UNK
     Route: 065
  2. AMLODIPINE\VALSARTAN [Interacting]
     Active Substance: AMLODIPINE\VALSARTAN
     Indication: Endocrine hypertension
  3. BISOPROLOL [Interacting]
     Active Substance: BISOPROLOL
     Indication: Hyperaldosteronism
     Dosage: 5 MG, QD
     Route: 065
  4. BISOPROLOL [Interacting]
     Active Substance: BISOPROLOL
     Indication: Endocrine hypertension
  5. CLONIDINE [Interacting]
     Active Substance: CLONIDINE
     Indication: Hyperaldosteronism
     Dosage: 75 UG
     Route: 065
  6. CLONIDINE [Interacting]
     Active Substance: CLONIDINE
     Indication: Endocrine hypertension
  7. NIFEDIPINE [Interacting]
     Active Substance: NIFEDIPINE
     Indication: Hyperaldosteronism
     Dosage: 30 MG, QD
     Route: 065
  8. NIFEDIPINE [Interacting]
     Active Substance: NIFEDIPINE
     Indication: Endocrine hypertension
     Dosage: 30 MG
     Route: 065
  9. OLMESARTAN [Interacting]
     Active Substance: OLMESARTAN
     Indication: Hyperaldosteronism
     Dosage: 20 MG
     Route: 065
  10. OLMESARTAN [Interacting]
     Active Substance: OLMESARTAN
     Indication: Endocrine hypertension
  11. SPIRONOLACTONE [Interacting]
     Active Substance: SPIRONOLACTONE
     Indication: Hyperaldosteronism
     Dosage: 20 MG (THREE TIMES A DAY)
     Route: 065
  12. SPIRONOLACTONE [Interacting]
     Active Substance: SPIRONOLACTONE
     Indication: Endocrine hypertension
     Dosage: 20 MG
     Route: 065
  13. SPIRONOLACTONE [Interacting]
     Active Substance: SPIRONOLACTONE
     Dosage: 20 MG (THREE TIMES A DAY)
     Route: 065
  14. AMLODIPINE\OLMESARTAN [Interacting]
     Active Substance: AMLODIPINE\OLMESARTAN
     Indication: Hyperaldosteronism
     Dosage: UNK
     Route: 065
  15. AMLODIPINE\OLMESARTAN [Interacting]
     Active Substance: AMLODIPINE\OLMESARTAN
     Indication: Endocrine hypertension
  16. RIFAMPIN [Interacting]
     Active Substance: RIFAMPIN
     Indication: Brucellosis
     Dosage: 600 MG, QD
     Route: 065
  17. DEXAMETHASONE [Interacting]
     Active Substance: DEXAMETHASONE
     Indication: Dexamethasone suppression test
     Dosage: UNK
     Route: 065
  18. DOXAZOSIN [Concomitant]
     Active Substance: DOXAZOSIN MESYLATE
     Indication: Unevaluable therapy
     Dosage: 4 MG
     Route: 065
  19. DILTIAZEM [Concomitant]
     Active Substance: DILTIAZEM
     Indication: Unevaluable therapy
     Dosage: 90 MG
     Route: 065
  20. ISOSORBIDE MONONITRATE [Concomitant]
     Active Substance: ISOSORBIDE MONONITRATE
     Indication: Chest discomfort
     Dosage: 40 MG, QD
     Route: 065
  21. TERAZOSIN [Concomitant]
     Active Substance: TERAZOSIN HYDROCHLORIDE
     Indication: Hyperaldosteronism
     Dosage: 4 MG, Q8H
     Route: 065
  22. TERAZOSIN [Concomitant]
     Active Substance: TERAZOSIN HYDROCHLORIDE
     Indication: Endocrine hypertension
  23. DOXYCYCLINE [Concomitant]
     Active Substance: DOXYCYCLINE
     Indication: Brucellosis
     Dosage: 100 MG
     Route: 065

REACTIONS (3)
  - Drug level decreased [Unknown]
  - Drug interaction [Unknown]
  - Drug ineffective [Unknown]
